FAERS Safety Report 18012626 (Version 1)
Quarter: 2020Q3

REPORT INFORMATION
  Report Type: Spontaneous
  Country: US (occurrence: US)
  Receive Date: 20200712
  Receipt Date: 20200712
  Transmission Date: 20201103
  Serious: Yes (Other)
  Sender: FDA-Public Use
  Company Number: None

PATIENT
  Age: 34 Year
  Sex: Male
  Weight: 87.7 kg

DRUGS (3)
  1. REMDESIVIR. [Suspect]
     Active Substance: REMDESIVIR
     Indication: COVID-19 PNEUMONIA
     Route: 042
  2. REMDESIVIR 100 MG DAILY [Concomitant]
     Dates: start: 20200701, end: 20200704
  3. REMDESIVIR 200 MG IV X1 [Concomitant]
     Dates: start: 20200630, end: 20200630

REACTIONS (2)
  - Liver function test increased [None]
  - Alanine aminotransferase increased [None]

NARRATIVE: CASE EVENT DATE: 20200701
